FAERS Safety Report 23250487 (Version 1)
Quarter: 2023Q4

REPORT INFORMATION
  Report Type: Spontaneous
  Country: EU (occurrence: EU)
  Receive Date: 20231201
  Receipt Date: 20231201
  Transmission Date: 20240110
  Serious: Yes (Hospitalization)
  Sender: FDA-Public Use
  Company Number: None

PATIENT

DRUGS (1)
  1. ARTICAINE HYDROCHLORIDE\EPINEPHRINE BITARTRATE [Suspect]
     Active Substance: ARTICAINE HYDROCHLORIDE\EPINEPHRINE BITARTRATE
     Indication: Local anaesthesia
     Dosage: DOSAGGIO - 1?FREQUENZA SOMMINISTRAZIONE - TOTALE?VIA SOMMINISTRAZIONE - PERINEURALE
     Route: 004
     Dates: start: 20231116, end: 20231116

REACTIONS (4)
  - Oropharyngeal discomfort [Recovering/Resolving]
  - Tonsillar hypertrophy [Recovering/Resolving]
  - Face oedema [Recovering/Resolving]
  - Tonsillar exudate [Recovering/Resolving]

NARRATIVE: CASE EVENT DATE: 20231116
